FAERS Safety Report 11540189 (Version 2)
Quarter: 2015Q3

REPORT INFORMATION
  Report Type: Spontaneous
  Country: TR (occurrence: TR)
  Receive Date: 20150923
  Receipt Date: 20150923
  Transmission Date: 20151125
  Serious: Yes (Hospitalization, Disabling)
  Sender: FDA-Public Use
  Company Number: TR-SEBELA IRELAND LIMITED-2015SEB00081

PATIENT
  Age: 3 Year
  Sex: Male

DRUGS (1)
  1. HYDROCORTISONE. [Suspect]
     Active Substance: HYDROCORTISONE
     Indication: ADRENOGENITAL SYNDROME
     Route: 048

REACTIONS (4)
  - Steroid withdrawal syndrome [Recovered/Resolved]
  - Epilepsy [Recovered/Resolved with Sequelae]
  - Coma [Recovered/Resolved]
  - Encephalopathy [Recovered/Resolved with Sequelae]
